FAERS Safety Report 11508340 (Version 1)
Quarter: 2015Q3

REPORT INFORMATION
  Report Type: Spontaneous
  Country: US (occurrence: US)
  Receive Date: 20150903
  Receipt Date: 20150903
  Transmission Date: 20151125
  Serious: No
  Sender: FDA-Public Use
  Company Number: US-ELI_LILLY_AND_COMPANY-US200912001313

PATIENT
  Age: 52 Year
  Sex: Female

DRUGS (8)
  1. SYNTHROID [Concomitant]
     Active Substance: LEVOTHYROXINE SODIUM
     Indication: THYROID DISORDER
  2. HUMALOG [Suspect]
     Active Substance: INSULIN LISPRO
     Indication: DIABETES MELLITUS
     Route: 058
     Dates: start: 1999
  3. VITAMINS [Concomitant]
     Active Substance: VITAMINS
  4. NORVASC [Concomitant]
     Active Substance: AMLODIPINE BESYLATE
  5. VYTORIN [Concomitant]
     Active Substance: EZETIMIBE\SIMVASTATIN
     Indication: BLOOD CHOLESTEROL
  6. COZAAR [Concomitant]
     Active Substance: LOSARTAN POTASSIUM
  7. LEXAPRO [Concomitant]
     Active Substance: ESCITALOPRAM OXALATE
  8. HUMALOG [Suspect]
     Active Substance: INSULIN LISPRO
     Route: 058
     Dates: start: 1999

REACTIONS (5)
  - Anxiety [Recovered/Resolved]
  - Poor quality drug administered [Recovered/Resolved]
  - Malaise [Recovered/Resolved]
  - Rheumatoid arthritis [Not Recovered/Not Resolved]
  - Blood glucose increased [Recovered/Resolved]

NARRATIVE: CASE EVENT DATE: 2002
